FAERS Safety Report 6255017-1 (Version None)
Quarter: 2009Q3

REPORT INFORMATION
  Report Type: 
  Country: None (occurrence: None)
  Receive Date: 20090702
  Receipt Date: 20090626
  Transmission Date: 20100115
  Serious: Yes (Congenital Anomaly)
  Sender: FDA-Public Use
  Company Number: US-MERCK-0906USA05680

PATIENT
  Age: 26 Year
  Sex: Female

DRUGS (4)
  1. ISENTRESS [Suspect]
     Route: 048
     Dates: start: 20090126, end: 20090224
  2. ISENTRESS [Suspect]
     Route: 048
     Dates: start: 20090327
  3. TRUVADA [Suspect]
     Route: 048
     Dates: start: 20090327
  4. TRUVADA [Suspect]
     Route: 048
     Dates: start: 20090126, end: 20090224

REACTIONS (2)
  - CLEFT LIP [None]
  - DRUG EXPOSURE DURING PREGNANCY [None]
